FAERS Safety Report 15808614 (Version 3)
Quarter: 2019Q1

REPORT INFORMATION
  Report Type: Spontaneous
  Country: US (occurrence: US)
  Receive Date: 20190110
  Receipt Date: 20190116
  Transmission Date: 20190417
  Serious: Yes (Other)
  Sender: FDA-Public Use
  Company Number: US-SA-2019SA005943

PATIENT
  Sex: Female

DRUGS (1)
  1. KEVZARA [Suspect]
     Active Substance: SARILUMAB
     Indication: RHEUMATOID ARTHRITIS
     Dosage: 200 MG, QOW
     Route: 058
     Dates: start: 20180917

REACTIONS (7)
  - Knee arthroplasty [Recovering/Resolving]
  - Product dose omission [Recovering/Resolving]
  - Amnesia [Recovering/Resolving]
  - Pruritus [Recovering/Resolving]
  - Depression [Recovering/Resolving]
  - Nodule [Recovering/Resolving]
  - Arthralgia [Recovering/Resolving]
